FAERS Safety Report 7822640-X (Version None)
Quarter: 2011Q4

REPORT INFORMATION
  Report Type: 
  Country: None (occurrence: None)
  Receive Date: 20111018
  Receipt Date: 20111011
  Transmission Date: 20120403
  Serious: Yes (Other)
  Sender: FDA-Public Use
  Company Number: US-US-EMD SERONO, INC.-7085421

PATIENT
  Sex: Female
  Weight: 66 kg

DRUGS (2)
  1. REBIF [Suspect]
     Indication: MULTIPLE SCLEROSIS
     Route: 058
     Dates: start: 20100901
  2. TYLENOL-500 [Concomitant]
     Indication: PREMEDICATION

REACTIONS (7)
  - COELIAC DISEASE [None]
  - CENTRAL NERVOUS SYSTEM LESION [None]
  - INJECTION SITE HAEMORRHAGE [None]
  - INJECTION SITE DISCOMFORT [None]
  - DYSKINESIA [None]
  - INJECTION SITE ERYTHEMA [None]
  - INJECTION SITE PAIN [None]
